FAERS Safety Report 23075825 (Version 1)
Quarter: 2023Q4

REPORT INFORMATION
  Report Type: Spontaneous
  Country: DE (occurrence: DE)
  Receive Date: 20231017
  Receipt Date: 20231017
  Transmission Date: 20240109
  Serious: Yes (Other)
  Sender: FDA-Public Use
  Company Number: DE-CADRBFARM-2023320328

PATIENT
  Age: 22 Year
  Sex: Male
  Weight: 95 kg

DRUGS (1)
  1. CIPROFLOXACIN [Suspect]
     Active Substance: CIPROFLOXACIN
     Indication: Otitis externa
     Dosage: 750 MILLIGRAM, 750MG 2X DAILY
     Route: 048
     Dates: start: 20150513, end: 20150527

REACTIONS (21)
  - Mitochondrial cytopathy [Unknown]
  - Hypothyroidism [Unknown]
  - Loss of consciousness [Recovered/Resolved]
  - Arrhythmia [Recovered/Resolved]
  - Adrenal insufficiency [Unknown]
  - Dyschromatopsia [Unknown]
  - Fatigue [Unknown]
  - Mucosal exfoliation [Unknown]
  - Blood pressure abnormal [Recovered/Resolved]
  - Constipation [Unknown]
  - Cardiovascular disorder [Recovered/Resolved]
  - Metabolic disorder [Unknown]
  - Dyspepsia [Unknown]
  - Diarrhoea [Unknown]
  - Progressive external ophthalmoplegia [Not Recovered/Not Resolved]
  - Gingival bleeding [Unknown]
  - Heart rate increased [Recovered/Resolved]
  - Inflammation [Unknown]
  - Gastrointestinal pain [Unknown]
  - Abdominal pain lower [Unknown]
  - Bacterial disease carrier [Unknown]

NARRATIVE: CASE EVENT DATE: 20170727
